FAERS Safety Report 16109491 (Version 1)
Quarter: 2019Q1

REPORT INFORMATION
  Report Type: Spontaneous
  Country: PT (occurrence: PT)
  Receive Date: 20190324
  Receipt Date: 20190324
  Transmission Date: 20190418
  Serious: Yes (Disabling, Other)
  Sender: FDA-Public Use
  Company Number: PHHY2019PT063756

PATIENT
  Sex: Female
  Weight: 60 kg

DRUGS (4)
  1. CONCOR [Concomitant]
     Active Substance: BISOPROLOL FUMARATE
     Indication: BLOOD PRESSURE DIASTOLIC INCREASED
     Dosage: 2.5 MG, QD
     Route: 048
  2. ROSUVASTATIN. [Concomitant]
     Active Substance: ROSUVASTATIN
     Indication: HYPERCHOLESTEROLAEMIA
     Dosage: 10 MG, QD
     Route: 048
     Dates: start: 201802
  3. MAGNESIOCARD [Concomitant]
     Active Substance: MAGNESIUM ASPARTATE HYDROCHLORIDE
     Indication: MUSCULAR WEAKNESS
     Dosage: 1229.6 DF, QD
     Route: 048
     Dates: start: 201902, end: 20190228
  4. AMOXICILLINE/ACIDE CLAVULANIQUE SANDOZ [Suspect]
     Active Substance: AMOXICILLIN\CLAVULANIC ACID
     Indication: LUNG INFECTION
     Dosage: 1 DF, Q12H (875 MG + 125 MG DE 12/12 HORAS)
     Route: 048
     Dates: start: 20190301, end: 20190306

REACTIONS (6)
  - Throat tightness [Not Recovered/Not Resolved]
  - Adverse reaction [Not Recovered/Not Resolved]
  - Abdominal pain upper [Not Recovered/Not Resolved]
  - Dysphagia [Not Recovered/Not Resolved]
  - Rash macular [Not Recovered/Not Resolved]
  - Rash pruritic [Not Recovered/Not Resolved]

NARRATIVE: CASE EVENT DATE: 20190305
